FAERS Safety Report 25969239 (Version 2)
Quarter: 2025Q4

REPORT INFORMATION
  Report Type: Report from Study
  Country: EU (occurrence: EU)
  Receive Date: 20251028
  Receipt Date: 20251216
  Transmission Date: 20260117
  Serious: Yes (Death, Other)
  Sender: PFIZER
  Company Number: EU-PFIZER INC-202500211224

PATIENT
  Age: 75 Year
  Sex: Female

DRUGS (1)
  1. ATRACURIUM BESYLATE [Suspect]
     Active Substance: ATRACURIUM BESYLATE
     Indication: Neuromuscular blockade
     Dosage: UNK
     Dates: start: 2020

REACTIONS (5)
  - Death [Fatal]
  - Anaphylactic shock [Unknown]
  - Intensive care unit acquired weakness [Unknown]
  - Varicella zoster virus infection [Unknown]
  - Pneumonia klebsiella [Unknown]

NARRATIVE: CASE EVENT DATE: 20200101
